FAERS Safety Report 20673888 (Version 3)
Quarter: 2022Q2

REPORT INFORMATION
  Report Type: Report from Study
  Country: CO (occurrence: CO)
  Receive Date: 20220405
  Receipt Date: 20220427
  Transmission Date: 20220721
  Serious: Yes (Hospitalization)
  Sender: FDA-Public Use
  Company Number: CO-NOVARTISPH-NVSC2021CO160225

PATIENT
  Sex: Male

DRUGS (4)
  1. JADENU [Suspect]
     Active Substance: DEFERASIROX
     Indication: Sickle cell disease
     Dosage: 360 MG, Q12H( 1 TABLET)
     Route: 048
  2. JADENU [Suspect]
     Active Substance: DEFERASIROX
     Indication: Iron overload
     Dosage: 720 MG, QD
     Route: 048
  3. JADENU [Suspect]
     Active Substance: DEFERASIROX
     Dosage: 360 MG, QD (3 TABLET)
     Route: 048
  4. JADENU [Suspect]
     Active Substance: DEFERASIROX
     Dosage: 1080 MG, QD
     Route: 048

REACTIONS (4)
  - Gastroenteritis [Unknown]
  - Illness [Unknown]
  - Serum ferritin increased [Unknown]
  - Dizziness [Unknown]
